FAERS Safety Report 8268833-1 (Version None)
Quarter: 2012Q2

REPORT INFORMATION
  Report Type: 
  Country: None (occurrence: None)
  Receive Date: 20120409
  Receipt Date: 20120409
  Transmission Date: 20120825
  Serious: No
  Sender: FDA-Public Use
  Company Number: None

PATIENT
  Age: 42 Year
  Sex: Female
  Weight: 66.224 kg

DRUGS (1)
  1. ZICAM NO DRIP LIQUID NASAL GEL [Suspect]
     Indication: NASAL CONGESTION
     Dosage: 2 SPRAYS IN EACH NOSTRIL
     Route: 006
     Dates: start: 20120329, end: 20120331

REACTIONS (6)
  - NAUSEA [None]
  - DRUG INEFFECTIVE [None]
  - ANOSMIA [None]
  - EPISTAXIS [None]
  - HEADACHE [None]
  - INSOMNIA [None]
